FAERS Safety Report 8843602 (Version 1)
Quarter: 2012Q4

REPORT INFORMATION
  Report Type: 
  Country: US (occurrence: US)
  Receive Date: 20121016
  Receipt Date: 20121016
  Transmission Date: 20130627
  Serious: Yes (Hospitalization, Disabling, Other)
  Sender: FDA-Public Use
  Company Number: US-009507513-0808USA03978

PATIENT

DRUGS (5)
  1. FOSAMAX [Suspect]
     Indication: OSTEOPOROSIS
     Dosage: 70 mg, QW
     Route: 048
     Dates: start: 200104, end: 200112
  2. FOSAMAX D [Suspect]
     Route: 048
     Dates: start: 200201, end: 200612
  3. ACTONEL [Suspect]
     Dates: start: 200701, end: 200710
  4. METOPROLOL [Concomitant]
     Dosage: 25 mg, bid
     Dates: start: 20001128
  5. NIACIN [Concomitant]
     Indication: HYPERLIPIDAEMIA
     Dosage: 1 UNK, bid
     Dates: start: 20020702

REACTIONS (53)
  - Myocardial infarction [Unknown]
  - Eyelid ptosis [Unknown]
  - Coronary artery disease [Not Recovered/Not Resolved]
  - Renal failure chronic [Not Recovered/Not Resolved]
  - Cardiac failure congestive [Unknown]
  - Abscess drainage [Unknown]
  - Dementia [Not Recovered/Not Resolved]
  - Mobility decreased [Unknown]
  - Ventricular tachycardia [Unknown]
  - Mental impairment [Unknown]
  - Osteomyelitis [Unknown]
  - Dyspnoea [Unknown]
  - Facial nerve disorder [Unknown]
  - Parotitis [Unknown]
  - Dementia Alzheimer^s type [Unknown]
  - Coronary artery disease [Unknown]
  - Malnutrition [Unknown]
  - Vena cava filter insertion [Unknown]
  - Failure to thrive [Unknown]
  - Hypothyroidism [Unknown]
  - Left ventricular failure [Unknown]
  - Arteriosclerosis [Unknown]
  - Abscess jaw [Not Recovered/Not Resolved]
  - Urinary retention [Unknown]
  - Systemic inflammatory response syndrome [Recovered/Resolved]
  - Asthenia [Unknown]
  - Osteonecrosis of jaw [Not Recovered/Not Resolved]
  - Fall [Not Recovered/Not Resolved]
  - Loose tooth [Unknown]
  - Mitral valve incompetence [Unknown]
  - Scapula fracture [Not Recovered/Not Resolved]
  - Decubitus ulcer [Unknown]
  - Tooth abscess [Unknown]
  - Tooth abscess [Unknown]
  - Ligament sprain [Not Recovered/Not Resolved]
  - Arthritis [Unknown]
  - Angina pectoris [Unknown]
  - Contusion [Unknown]
  - Osteoarthritis [Unknown]
  - Arthropathy [Unknown]
  - Knee deformity [Unknown]
  - Knee deformity [Unknown]
  - Anaemia of chronic disease [Not Recovered/Not Resolved]
  - Angina pectoris [Unknown]
  - Abscess jaw [Unknown]
  - Venous insufficiency [Not Recovered/Not Resolved]
  - Deep vein thrombosis [Unknown]
  - Abscess [Unknown]
  - Cellulitis [Unknown]
  - Tooth disorder [Unknown]
  - Ankle fracture [Recovered/Resolved]
  - Arthralgia [Unknown]
  - Arthralgia [Unknown]
